FAERS Safety Report 8902470 (Version 2)
Quarter: 2014Q3

REPORT INFORMATION
  Report Type: Spontaneous
  Country: CN (occurrence: CN)
  Receive Date: 20121112
  Receipt Date: 20140813
  Transmission Date: 20150326
  Serious: Yes (Death, Hospitalization)
  Sender: FDA-Public Use
  Company Number: CN-BAYER-2012-117673

PATIENT
  Age: 39 Year
  Sex: Male
  Weight: 97 kg

DRUGS (2)
  1. ULTRAVIST [Suspect]
     Active Substance: IOPROMIDE
     Indication: COMPUTERISED TOMOGRAM ABDOMEN
     Dosage: 1 ML, ONCE ALLERGIC TEST
     Route: 042
     Dates: start: 20121015, end: 20121015
  2. ULTRAVIST [Suspect]
     Active Substance: IOPROMIDE
     Indication: COMPUTERISED TOMOGRAM ABDOMEN
     Dosage: 100 ML, ONCE
     Dates: start: 20121015, end: 20121015

REACTIONS (15)
  - Urticaria [Fatal]
  - Hyperhidrosis [Fatal]
  - Brain oedema [Fatal]
  - Hypoaesthesia [Fatal]
  - Vomiting [Fatal]
  - Eyelid oedema [Fatal]
  - Multi-organ failure [Fatal]
  - Cardio-respiratory arrest [Fatal]
  - Dyspnoea [Fatal]
  - Wheezing [Fatal]
  - Lip swelling [Fatal]
  - Laryngeal oedema [Fatal]
  - Anaphylactic shock [Fatal]
  - Productive cough [Fatal]
  - Ventricular tachycardia [Fatal]

NARRATIVE: CASE EVENT DATE: 20121015
